FAERS Safety Report 5929639-9 (Version None)
Quarter: 2008Q4

REPORT INFORMATION
  Report Type: 
  Country: None (occurrence: None)
  Receive Date: 20081024
  Receipt Date: 20081023
  Transmission Date: 20090506
  Serious: Yes (Life-Threatening, Hospitalization)
  Sender: FDA-Public Use
  Company Number: BR-ASTRAZENECA-2008UW23614

PATIENT
  Age: 45 Year
  Sex: Female
  Weight: 50 kg

DRUGS (5)
  1. SELOZOK [Suspect]
     Route: 048
     Dates: start: 20070101, end: 20081020
  2. SELOZOK [Suspect]
     Route: 048
     Dates: start: 20081021
  3. ASPIRIN [Concomitant]
     Dates: start: 20070101
  4. FLUOXETINE [Concomitant]
     Dates: start: 20070101
  5. BROMAZEPAN [Concomitant]
     Dates: start: 20070101

REACTIONS (4)
  - CARDIOGENIC SHOCK [None]
  - CHEST PAIN [None]
  - POLLAKIURIA [None]
  - WEIGHT DECREASED [None]
